FAERS Safety Report 10866033 (Version 9)
Quarter: 2016Q3

REPORT INFORMATION
  Report Type: Report from Study
  Country: FI (occurrence: FI)
  Receive Date: 20150225
  Receipt Date: 20160706
  Transmission Date: 20161109
  Serious: Yes (Congenital Anomaly)
  Sender: FDA-Public Use
  Company Number: PHHY2015FI021451

PATIENT
  Sex: Male
  Weight: 3.5 kg

DRUGS (4)
  1. GILENYA [Suspect]
     Active Substance: FINGOLIMOD HYDROCHLORIDE
     Indication: FOETAL EXPOSURE DURING PREGNANCY
     Dosage: MATERNAL DOSE: 0.5 MG, QD
     Route: 064
     Dates: start: 20140605, end: 20141002
  2. BRICANYL [Concomitant]
     Active Substance: TERBUTALINE SULFATE
     Indication: FOETAL EXPOSURE DURING PREGNANCY
     Dosage: MATERNAL DOSE: 0.25 MG, AS NEEDED
     Route: 064
     Dates: end: 201407
  3. PREDNISOLONE. [Concomitant]
     Active Substance: PREDNISOLONE
     Indication: FOETAL EXPOSURE DURING PREGNANCY
     Dosage: MATERNAL DOSE: 1000 MG, QD
     Route: 064
     Dates: start: 20150319, end: 20150321
  4. KEFALEXIN [Concomitant]
     Indication: FOETAL EXPOSURE DURING PREGNANCY
     Dosage: MATERNAL DOSE: 500 MG, TID
     Route: 064
     Dates: start: 20150209, end: 20150218

REACTIONS (2)
  - Hydronephrosis [Not Recovered/Not Resolved]
  - Foetal exposure during pregnancy [Unknown]

NARRATIVE: CASE EVENT DATE: 20150101
